FAERS Safety Report 6490032-4 (Version None)
Quarter: 2009Q4

REPORT INFORMATION
  Report Type: 
  Country: None (occurrence: None)
  Receive Date: 20091211
  Receipt Date: 20091202
  Transmission Date: 20100525
  Serious: Yes (Death, Hospitalization)
  Sender: FDA-Public Use
  Company Number: US-ROCHE-646951

PATIENT
  Sex: Male
  Weight: 65 kg

DRUGS (6)
  1. CAPECITABINE [Suspect]
     Indication: RECTAL CANCER
     Dosage: 750 MG/M2, DAYS 1-28
     Route: 048
     Dates: start: 20090417, end: 20090612
  2. CAPECITABINE [Suspect]
     Dosage: 750 MG/M2, DAYS 1-28
     Route: 048
     Dates: start: 20090417, end: 20090612
  3. AVASTIN [Suspect]
     Indication: RECTAL CANCER
     Dosage: 5 MG/KG, DAYS 1+AMP;15
     Route: 042
     Dates: start: 20090417, end: 20090713
  4. OXALIPLATIN [Suspect]
     Indication: RECTAL CANCER
     Dosage: 85 MG/M2, DAYS 1+AMP;15
     Route: 042
     Dates: start: 20090417, end: 20090612
  5. VICODIN [Suspect]
     Indication: DRUG USE FOR UNKNOWN INDICATION
     Dosage: UNK
     Route: 065
  6. COLACE [Suspect]
     Indication: DRUG USE FOR UNKNOWN INDICATION
     Dosage: UNK
     Route: 065

REACTIONS (5)
  - ASTHENIA [None]
  - CEREBROVASCULAR ACCIDENT [None]
  - DEHYDRATION [None]
  - NAUSEA [None]
  - VOMITING [None]
